FAERS Safety Report 8585257-8 (Version None)
Quarter: 2012Q3

REPORT INFORMATION
  Report Type: 
  Country: None (occurrence: None)
  Receive Date: 20120810
  Receipt Date: 20120808
  Transmission Date: 20120928
  Serious: Yes (Death, Hospitalization, Other)
  Sender: FDA-Public Use
  Company Number: PHHY2011JP26060

PATIENT
  Sex: Male

DRUGS (5)
  1. BUFFERIN [Concomitant]
     Indication: HYPERTENSION
     Dosage: UNK
     Route: 048
     Dates: start: 19960101
  2. LISINOPRIL [Concomitant]
     Indication: HYPERTENSION
     Dosage: 10 MG, UNK
     Route: 048
     Dates: start: 19960101
  3. TASIGNA [Suspect]
     Indication: CHRONIC MYELOID LEUKAEMIA
     Dosage: 800 MG, UNK
     Route: 048
     Dates: start: 20090729
  4. METFORMIN HCL [Concomitant]
     Indication: DIABETES MELLITUS
     Dosage: 1000 MG, UNK
     Route: 048
     Dates: start: 19960101
  5. NEO-MERCAZOLE TAB [Concomitant]
     Indication: BASEDOW'S DISEASE
     Dosage: 2.5 MG, UNK
     Route: 048
     Dates: start: 19960101

REACTIONS (3)
  - PLEURISY [None]
  - CARDIAC FAILURE CONGESTIVE [None]
  - DEATH [None]
